FAERS Safety Report 9686224 (Version 2)
Quarter: 2013Q4

REPORT INFORMATION
  Report Type: Spontaneous
  Country: PK (occurrence: PK)
  Receive Date: 20131113
  Receipt Date: 20131122
  Transmission Date: 20140711
  Serious: Yes (Death)
  Sender: FDA-Public Use
  Company Number: PHHY2013PK126121

PATIENT
  Sex: 0

DRUGS (1)
  1. PACLITAXEL EBEWE [Suspect]
     Route: 042

REACTIONS (3)
  - Hepatic failure [Fatal]
  - Bone marrow failure [Fatal]
  - Rash [Fatal]
